FAERS Safety Report 15599798 (Version 4)
Quarter: 2020Q4

REPORT INFORMATION
  Report Type: Report from Study
  Country: US (occurrence: US)
  Receive Date: 20181108
  Receipt Date: 20201215
  Transmission Date: 20210113
  Serious: Yes (Hospitalization)
  Sender: FDA-Public Use
  Company Number: US-CELGENEUS-USA-20181011151

PATIENT
  Age: 80 Year
  Sex: Male
  Weight: 72.28 kg

DRUGS (2)
  1. GLASDEGIB [Suspect]
     Active Substance: GLASDEGIB
     Indication: ACUTE MYELOID LEUKAEMIA
     Dosage: 100 MILLIGRAM
     Route: 048
     Dates: start: 20180827, end: 20181019
  2. AZACITIDINE. [Suspect]
     Active Substance: AZACITIDINE
     Indication: ACUTE MYELOID LEUKAEMIA
     Dosage: 152 MILLIGRAM
     Route: 058
     Dates: start: 20180827, end: 20181001

REACTIONS (1)
  - Perirectal abscess [Recovering/Resolving]

NARRATIVE: CASE EVENT DATE: 20181019
